FAERS Safety Report 11872764 (Version 5)
Quarter: 2017Q3

REPORT INFORMATION
  Report Type: Spontaneous
  Country: US (occurrence: US)
  Receive Date: 20151228
  Receipt Date: 20170717
  Transmission Date: 20171127
  Serious: No
  Sender: FDA-Public Use
  Company Number: US-PFIZER INC-2015441776

PATIENT
  Age: 68 Year
  Sex: Female

DRUGS (23)
  1. ASA [Concomitant]
     Active Substance: ASPIRIN
     Dosage: UNK
  2. BRIMONIDINE TARTRATE. [Concomitant]
     Active Substance: BRIMONIDINE TARTRATE
     Dosage: UNK
     Dates: start: 20140403
  3. INSULIN [Concomitant]
     Active Substance: INSULIN NOS
     Dosage: UNK
  4. NEXIUM [Concomitant]
     Active Substance: ESOMEPRAZOLE MAGNESIUM
     Dosage: 40 MG, 1X/DAY
     Route: 048
     Dates: start: 20140428
  5. METOPROLOL SUCCINATE. [Concomitant]
     Active Substance: METOPROLOL SUCCINATE
     Dosage: 50 MG, 1X/DAY
     Route: 048
     Dates: start: 20140428
  6. ACETAMINOPHEN W/HYDROCODONE [Concomitant]
     Active Substance: ACETAMINOPHEN\HYDROCODONE
     Dosage: UNK UNK, 3X/DAY [HYDROCODONE 7.5 MG] [ACETAMINOPHEN 325 MG]
     Route: 048
     Dates: start: 20140401
  7. FUROSEMIDE. [Concomitant]
     Active Substance: FUROSEMIDE
     Dosage: 20 MG, 1X/DAY (EVERY MORNING)
     Route: 048
  8. VICODIN [Concomitant]
     Active Substance: ACETAMINOPHEN\HYDROCODONE BITARTRATE
     Dosage: UNK
  9. METOPROLOL. [Concomitant]
     Active Substance: METOPROLOL
     Dosage: UNK
  10. ALLOPURINOL. [Concomitant]
     Active Substance: ALLOPURINOL
     Dosage: 300 MG, 1X/DAY
     Route: 048
     Dates: start: 20130730
  11. SIMVASTATIN. [Concomitant]
     Active Substance: SIMVASTATIN
     Dosage: 40 MG, DAILY (EVERY EVENING)
     Route: 048
  12. VESICARE [Concomitant]
     Active Substance: SOLIFENACIN SUCCINATE
     Dosage: 10 MG, 1X/DAY
     Route: 048
     Dates: start: 20160813
  13. HUMULIN N [Concomitant]
     Active Substance: INSULIN HUMAN
     Dosage: UNK
     Dates: start: 20160407
  14. HUMULIN RU-500 [Concomitant]
     Dosage: 22 IU, 3X/DAY
     Route: 058
     Dates: start: 20151231
  15. BETOPTIC-S [Concomitant]
     Active Substance: BETAXOLOL HYDROCHLORIDE
     Dosage: UNK UNK, 2X/DAY (INSTILL 2 DROPS INTO BOTH EYES)
     Route: 047
     Dates: start: 20140428
  16. LYRICA [Suspect]
     Active Substance: PREGABALIN
     Dosage: 150 MG, 2X/DAY
     Route: 048
     Dates: start: 20140430
  17. IRON [Concomitant]
     Active Substance: IRON
     Dosage: 325 MG, 2X/DAY
     Route: 048
     Dates: start: 20140821
  18. NYSTATIN/ZINC OXIDE [Concomitant]
     Dosage: UNK UNK, 2X/DAY (APPLY SPARINGLY TO AFFECTED AREA)
     Dates: start: 20151230
  19. PROAIR HFA [Concomitant]
     Active Substance: ALBUTEROL SULFATE
     Dosage: UNK UNK, AS NEEDED (, INHALE 1 TO 2 PUFFS EVERY 4 TO 6 HOURS)
     Dates: start: 20140428
  20. OXYBUTYNIN CHLORIDE. [Concomitant]
     Active Substance: OXYBUTYNIN CHLORIDE
     Dosage: 5 MG, 2X/DAY
     Route: 048
     Dates: start: 20140502
  21. TRAMADOL HCL [Concomitant]
     Active Substance: TRAMADOL HYDROCHLORIDE
     Indication: PAIN
     Dosage: 50 MG, AS NEEDED (3 TIMES A DAY)
     Route: 048
     Dates: start: 20140401
  22. TRAVATAN Z [Concomitant]
     Active Substance: TRAVOPROST
     Dosage: UNK
     Dates: start: 20140428
  23. DIOVAN [Concomitant]
     Active Substance: VALSARTAN
     Dosage: 80 MG, 1X/DAY
     Dates: start: 20140425

REACTIONS (3)
  - Cough [Unknown]
  - Pain [Unknown]
  - Nasopharyngitis [Unknown]
